FAERS Safety Report 8217512-5 (Version None)
Quarter: 2012Q1

REPORT INFORMATION
  Report Type: 
  Country: None (occurrence: None)
  Receive Date: 20120315
  Receipt Date: 20120302
  Transmission Date: 20120608
  Serious: Yes (Death)
  Sender: FDA-Public Use
  Company Number: 2012PL000037

PATIENT
  Sex: Male

DRUGS (3)
  1. REMICADE [Suspect]
     Indication: CROHN'S DISEASE
     Dosage: ;UNK IV
     Route: 042
     Dates: start: 19900101, end: 20080601
  2. IMURAN [Suspect]
     Indication: CROHN'S DISEASE
     Dosage: ;UNK
     Dates: start: 19900101
  3. HUMIRA [Suspect]
     Indication: CROHN'S DISEASE
     Dosage: 40 MG ; UNK;
     Dates: start: 20080601, end: 20100201

REACTIONS (2)
  - ACUTE MYELOID LEUKAEMIA [None]
  - HAEMATOLOGICAL MALIGNANCY [None]
